FAERS Safety Report 8874078 (Version 2)
Quarter: 2012Q4

REPORT INFORMATION
  Report Type: Report from Study
  Country: AT (occurrence: AT)
  Receive Date: 20121030
  Receipt Date: 20121130
  Transmission Date: 20130627
  Serious: Yes (Death)
  Sender: FDA-Public Use
  Company Number: AT-BAXTER-2012BAX020681

PATIENT
  Sex: Male
  Weight: 80 kg

DRUGS (4)
  1. CEPROTIN [Suspect]
     Indication: PROTEIN C DEFICIENCY
     Route: 040
     Dates: start: 20110806, end: 20110806
  2. CEPROTIN [Suspect]
     Route: 042
     Dates: start: 20110807, end: 20110807
  3. CEPROTIN [Suspect]
     Route: 042
     Dates: start: 20110808, end: 20110808
  4. CEPROTIN [Suspect]
     Route: 042
     Dates: start: 20110808, end: 20110808

REACTIONS (1)
  - Multi-organ failure [Fatal]
